FAERS Safety Report 15048808 (Version 12)
Quarter: 2020Q4

REPORT INFORMATION
  Report Type: Spontaneous
  Country: US (occurrence: US)
  Receive Date: 20180622
  Receipt Date: 20201216
  Transmission Date: 20210113
  Serious: Yes (Other)
  Sender: FDA-Public Use
  Company Number: US-PFIZER INC-2018253171

PATIENT
  Age: 82 Year
  Sex: Female
  Weight: 51.71 kg

DRUGS (12)
  1. BAYER ASPIRIN [Concomitant]
     Active Substance: ASPIRIN
     Dosage: 325 MG, DAILY
     Dates: start: 1990
  2. LIPITOR [Suspect]
     Active Substance: ATORVASTATIN CALCIUM
     Indication: MITRAL VALVE PROLAPSE
  3. ASPIRIN [ACETYLSALICYLIC ACID] [Concomitant]
     Active Substance: ASPIRIN
     Dosage: 325 MG, DAILY
  4. INSULIN [Concomitant]
     Active Substance: INSULIN NOS
     Dosage: UNK
  5. VITAMIN D [COLECALCIFEROL] [Concomitant]
     Active Substance: CHOLECALCIFEROL
     Dosage: 2000 IU, DAILY (FROM 10-20 YEARS AGO)
  6. LIPITOR [Suspect]
     Active Substance: ATORVASTATIN CALCIUM
     Indication: CARDIAC MURMUR
  7. VITAMIN B12 [MECOBALAMIN] [Concomitant]
     Dosage: UNK (TWICE A MONTH WHEN PATIENT WAS 18 YEARS OLD )
  8. VITAMIN B12 [MECOBALAMIN] [Concomitant]
     Dosage: UNK UNK, MONTHLY
     Dates: start: 2017
  9. LIPITOR [Suspect]
     Active Substance: ATORVASTATIN CALCIUM
     Indication: BLOOD CHOLESTEROL ABNORMAL
     Dosage: 20 MG, 1X/DAY (AT NIGHT)
     Route: 048
  10. ASPIRIN [ACETYLSALICYLIC ACID] [Concomitant]
     Active Substance: ASPIRIN
     Dosage: 25 MG, 3X/DAY
  11. LIPITOR [Suspect]
     Active Substance: ATORVASTATIN CALCIUM
     Indication: PAIN IN EXTREMITY
  12. VITAMIN D [COLECALCIFEROL] [Concomitant]
     Active Substance: CHOLECALCIFEROL
     Dosage: 2000 IU, 2X/DAY (1 TAKEN AFTER LUNCH)

REACTIONS (5)
  - Drug dependence [Unknown]
  - Muscle spasms [Unknown]
  - Muscle contracture [Unknown]
  - Pulmonary fibrosis [Unknown]
  - Neuropathy peripheral [Unknown]
